FAERS Safety Report 25241436 (Version 1)
Quarter: 2025Q2

REPORT INFORMATION
  Report Type: Spontaneous
  Country: GB (occurrence: GB)
  Receive Date: 20250425
  Receipt Date: 20250425
  Transmission Date: 20250717
  Serious: Yes (Other)
  Sender: TEVA
  Company Number: GB-MHRA-TPP20094072C16269920YC1743600881686

PATIENT
  Age: 73 Year
  Sex: Male
  Weight: 92 kg

DRUGS (18)
  1. FENTANYL [Suspect]
     Active Substance: FENTANYL
     Indication: Ill-defined disorder
     Route: 065
  2. LANSOPRAZOLE [Concomitant]
     Active Substance: LANSOPRAZOLE
     Indication: Ill-defined disorder
     Dates: start: 20241112
  3. OLIVE OIL [Concomitant]
     Active Substance: OLIVE OIL
     Indication: Ill-defined disorder
     Route: 001
     Dates: start: 20250123, end: 20250202
  4. NEOMYCIN SULFATE [Concomitant]
     Active Substance: NEOMYCIN SULFATE
     Indication: Ill-defined disorder
     Dates: start: 20250401
  5. EPLERENONE [Concomitant]
     Active Substance: EPLERENONE
     Indication: Ill-defined disorder
     Dosage: AS DIRECTED BY CARDIOLOGIST
     Dates: start: 20241112
  6. DOCUSATE SODIUM [Concomitant]
     Active Substance: DOCUSATE SODIUM
     Indication: Ill-defined disorder
     Dates: start: 20241111
  7. VALUPAK VITAMIN D3 [Concomitant]
     Indication: Ill-defined disorder
     Dates: start: 20241112
  8. BISOPROLOL [Concomitant]
     Active Substance: BISOPROLOL
     Indication: Ill-defined disorder
     Dates: start: 20241025
  9. SACUBITRIL [Concomitant]
     Active Substance: SACUBITRIL
     Indication: Ill-defined disorder
     Dates: start: 20241025
  10. OTOMIZE [Concomitant]
     Indication: Ill-defined disorder
     Route: 001
     Dates: start: 20250123, end: 20250130
  11. MORPHINE SULFATE [Concomitant]
     Active Substance: MORPHINE SULFATE
     Indication: Ill-defined disorder
     Dates: start: 20250401
  12. EDOXABAN [Concomitant]
     Active Substance: EDOXABAN
     Indication: Ill-defined disorder
     Dates: start: 20241112
  13. CINNARIZINE [Concomitant]
     Active Substance: CINNARIZINE
     Indication: Ill-defined disorder
     Dates: start: 20241112
  14. FUROSEMIDE [Concomitant]
     Active Substance: FUROSEMIDE
     Indication: Ill-defined disorder
     Dosage: IN THE MORNING
     Dates: start: 20241025
  15. ATORVASTATIN [Concomitant]
     Active Substance: ATORVASTATIN
     Indication: Ill-defined disorder
     Dates: start: 20241112
  16. ACETAMINOPHEN\CODEINE PHOSPHATE [Concomitant]
     Active Substance: ACETAMINOPHEN\CODEINE PHOSPHATE
     Indication: Ill-defined disorder
     Dosage: TAKE 1 OR 2 4 TIMES/DAY
     Dates: start: 20250401
  17. EMCOZIN [Concomitant]
     Indication: Ill-defined disorder
     Dates: start: 20250401
  18. POLYETHYLENE GLYCOL 3350\POTASSIUM CHLORIDE\SODIUM BICARBONATE\SODIUM [Concomitant]
     Active Substance: POLYETHYLENE GLYCOL 3350\POTASSIUM CHLORIDE\SODIUM BICARBONATE\SODIUM CHLORIDE
     Indication: Ill-defined disorder
     Dates: start: 20241112

REACTIONS (1)
  - Vomiting [Recovered/Resolved]
